FAERS Safety Report 23464884 (Version 1)
Quarter: 2024Q1

REPORT INFORMATION
  Report Type: Spontaneous
  Country: JP (occurrence: JP)
  Receive Date: 20240201
  Receipt Date: 20240201
  Transmission Date: 20240410
  Serious: Yes (Hospitalization)
  Sender: FDA-Public Use
  Company Number: JP-BAYER-2024A016501

PATIENT
  Age: 70 Year
  Sex: Female

DRUGS (2)
  1. EYLEA [Suspect]
     Active Substance: AFLIBERCEPT
     Indication: Diabetic retinal oedema
     Dosage: LEFT EYE (PATIENT TREATED ON BOTH EYES)?, Q1MON,  SOLUTION FOR INJECTION IN PFS, 40 MG/ML
     Route: 031
     Dates: start: 20231212, end: 20231212
  2. EYLEA [Suspect]
     Active Substance: AFLIBERCEPT
     Dosage: RIGHT EYE (PATIENT TREATED ON BOTH EYES)?, Q1MON,  SOLUTION FOR INJECTION IN PFS, 40 MG/ML
     Route: 031
     Dates: start: 20231219, end: 20231219

REACTIONS (3)
  - Myocardial rupture [Unknown]
  - Cardiogenic shock [Unknown]
  - Myocardial infarction [Unknown]

NARRATIVE: CASE EVENT DATE: 20231221
